FAERS Safety Report 6790387 (Version 3)
Quarter: 2012Q4

REPORT INFORMATION
  Report Type: 
  Country: CA (occurrence: CA)
  Receive Date: 20081017
  Receipt Date: 20121102
  Transmission Date: 20130627
  Serious: Yes (Death, Hospitalization)
  Sender: FDA-Public Use
  Company Number: PHHY2008CA24364

PATIENT
  Age: 63 Year
  Sex: Male

DRUGS (2)
  1. ZOMETA [Suspect]
     Dosage: 3 mg, every 4 weeks
     Route: 042
     Dates: start: 20080319, end: 20080612
  2. ZOMETA [Suspect]
     Dosage: 3 mg, every 4 weeks
     Route: 042
     Dates: start: 20080809, end: 20080918

REACTIONS (5)
  - Death [Fatal]
  - Pain [Unknown]
  - Asthenia [Unknown]
  - Malaise [Unknown]
  - Blood creatinine increased [Unknown]
